FAERS Safety Report 9818255 (Version 1)
Quarter: 2013Q4

REPORT INFORMATION
  Report Type: Spontaneous
  Country: US (occurrence: None)
  Receive Date: 20131223
  Receipt Date: 20131223
  Transmission Date: 20140711
  Serious: No
  Sender: FDA-Public Use
  Company Number: 219380

PATIENT
  Sex: Male
  Weight: 74.5 kg

DRUGS (2)
  1. PICATO [Suspect]
     Indication: PRECANCEROUS SKIN LESION
     Dosage: ONE TUBE (1 IN 1 D), TOPICAL
     Route: 061
     Dates: start: 20121021, end: 20121021
  2. REMICADE (INFLIXIMAB) [Concomitant]

REACTIONS (3)
  - Application site erythema [None]
  - Application site swelling [None]
  - Application site vesicles [None]
